FAERS Safety Report 7068430-X (Version None)
Quarter: 2010Q4

REPORT INFORMATION
  Report Type: 
  Country: None (occurrence: None)
  Receive Date: 20101028
  Receipt Date: 20101018
  Transmission Date: 20110411
  Serious: Yes (Hospitalization)
  Sender: FDA-Public Use
  Company Number: B0681273A

PATIENT
  Sex: Male

DRUGS (2)
  1. AUGMENTIN '125' [Suspect]
     Dosage: 2G PER DAY
     Route: 048
     Dates: start: 20100921, end: 20100922
  2. AULIN (NIMESULIDE) [Suspect]
     Dosage: 100MG PER DAY
     Route: 048
     Dates: start: 20100918, end: 20100920

REACTIONS (1)
  - SKIN REACTION [None]
